FAERS Safety Report 23333803 (Version 1)
Quarter: 2023Q4

REPORT INFORMATION
  Report Type: Spontaneous
  Country: US (occurrence: US)
  Receive Date: 20231223
  Receipt Date: 20231223
  Transmission Date: 20240109
  Serious: No
  Sender: FDA-Public Use
  Company Number: US-GSKCCFUS-Case-01886404_AE-105271

PATIENT
  Sex: Male

DRUGS (1)
  1. NUCALA [Suspect]
     Active Substance: MEPOLIZUMAB
     Indication: Asthma
     Route: 058
     Dates: start: 20231215, end: 20231215

REACTIONS (4)
  - Psoriasis [Unknown]
  - Wrong technique in device usage process [Unknown]
  - Therapeutic response unexpected [Unknown]
  - Accidental exposure to product [Unknown]
